FAERS Safety Report 5248370-9 (Version None)
Quarter: 2007Q1

REPORT INFORMATION
  Report Type: 
  Country: None (occurrence: None)
  Receive Date: 20070227
  Receipt Date: 20070219
  Transmission Date: 20070707
  Serious: Yes (Death)
  Sender: FDA-Public Use
  Company Number: US-SHR-US-2007-006360

PATIENT
  Age: 43 Year
  Sex: Male

DRUGS (5)
  1. MAGNEVIST [Suspect]
     Indication: NUCLEAR MAGNETIC RESONANCE IMAGING
     Dosage: 20 ML, 1 DOSE
     Route: 042
     Dates: start: 20001217, end: 20001217
  2. MAGNEVIST [Suspect]
     Dosage: 15 ML, 1 DOSE
     Route: 042
     Dates: start: 20020906, end: 20020906
  3. MAGNEVIST [Suspect]
     Dosage: 20 ML, 1 DOSE
     Route: 042
     Dates: start: 20020926, end: 20020926
  4. MAGNEVIST [Suspect]
     Dosage: 60 ML, 1 DOSE
     Route: 042
     Dates: start: 20040708, end: 20040708
  5. MAGNEVIST [Suspect]
     Dosage: 20 ML, 1 DOSE
     Route: 042
     Dates: start: 20040828, end: 20040828

REACTIONS (1)
  - NEPHROGENIC FIBROSING DERMOPATHY [None]
